FAERS Safety Report 5638776-8 (Version None)
Quarter: 2008Q1

REPORT INFORMATION
  Report Type: 
  Country: None (occurrence: None)
  Receive Date: 20080226
  Receipt Date: 20080215
  Transmission Date: 20080703
  Serious: Yes (Other)
  Sender: FDA-Public Use
  Company Number: DE-BRISTOL-MYERS SQUIBB COMPANY-14063309

PATIENT

DRUGS (8)
  1. CISPLATIN [Suspect]
     Indication: GASTRIC CANCER
     Dosage: 2 CYCLES
     Route: 042
  2. PACLITAXEL [Suspect]
     Indication: GASTRIC CANCER
     Dosage: 3 HOUR INFUSION. 2 CYCLES
     Route: 042
  3. FOLINIC ACID [Suspect]
     Dosage: TWO HOUR INFUSION. 2 CYCLES
     Route: 042
  4. FLUOROURACIL [Suspect]
     Indication: GASTRIC CANCER
     Dosage: 24 HOUR INFUSION. 2 CYCLES
     Route: 042
  5. RADIOTHERAPY [Suspect]
     Indication: GASTRIC CANCER
     Dosage: 45 GY AT 1.8 GYRATION PER DAY AND TOTAL OF 25 FRACTIONS. FULROURACIL 225MG/M2 ON ALL RADIATION DAYS.
  6. DEXAMETHASONE TAB [Concomitant]
     Indication: PROPHYLAXIS
  7. RANITIDINE [Concomitant]
     Indication: PROPHYLAXIS
  8. DIPHENHYDRAMINE HCL [Concomitant]
     Indication: PROPHYLAXIS

REACTIONS (12)
  - ANAEMIA [None]
  - ANOREXIA [None]
  - DIARRHOEA [None]
  - GRANULOCYTOPENIA [None]
  - LEUKOPENIA [None]
  - NAUSEA [None]
  - NEUTROPENIA [None]
  - PAIN [None]
  - STOMATITIS [None]
  - THROMBOCYTOPENIA [None]
  - VOMITING [None]
  - WEIGHT DECREASED [None]
